FAERS Safety Report 14572377 (Version 2)
Quarter: 2018Q1

REPORT INFORMATION
  Report Type: Spontaneous
  Country: JP (occurrence: JP)
  Receive Date: 20180226
  Receipt Date: 20180320
  Transmission Date: 20180509
  Serious: Yes (Other)
  Sender: FDA-Public Use
  Company Number: JP-PFIZER INC-2018075528

PATIENT
  Age: 80 Year
  Sex: Male

DRUGS (3)
  1. OPALMON [Suspect]
     Active Substance: LIMAPROST
     Dosage: UNK
     Route: 048
  2. ALINAMIN (PROSULTIAMINE) [Suspect]
     Active Substance: PROSULTIAMINE
     Dosage: UNK
     Route: 042
  3. AMLODIN [Suspect]
     Active Substance: AMLODIPINE BESYLATE
     Indication: HYPERTENSION
     Dosage: 5 MG, DAILY
     Route: 048
     Dates: start: 1993, end: 20180213

REACTIONS (1)
  - Rhabdomyolysis [Not Recovered/Not Resolved]

NARRATIVE: CASE EVENT DATE: 201710
